FAERS Safety Report 4553637-3 (Version None)
Quarter: 2004Q4

REPORT INFORMATION
  Report Type: 
  Country: None (occurrence: None)
  Receive Date: 20041227
  Receipt Date: 20041019
  Transmission Date: 20050328
  Serious: No
  Sender: FDA-Public Use
  Company Number: 04P-163-0277930-00

PATIENT
  Age: 78 Year
  Sex: Female
  Weight: 48.0813 kg

DRUGS (9)
  1. HUMIRA [Suspect]
     Indication: RHEUMATOID ARTHRITIS
     Dosage: 40 MG, 1 IN 2 WK, SUBCUTANEOUS
     Route: 058
     Dates: start: 20040701
  2. PREDNISONE [Concomitant]
  3. SOTALOL HYDROCHLORIDE [Concomitant]
  4. DYAZIDE [Concomitant]
  5. HYDROXYCHLOROQUINE PHOSPHATE [Concomitant]
  6. POTASSIUM [Concomitant]
  7. MAGNESIUM [Concomitant]
  8. THYROID TAB [Concomitant]
  9. WARFARIN SODIUM [Concomitant]

REACTIONS (1)
  - HYPOKINESIA [None]
